FAERS Safety Report 7204010-0 (Version None)
Quarter: 2010Q4

REPORT INFORMATION
  Report Type: 
  Country: None (occurrence: None)
  Receive Date: 20101220
  Receipt Date: 20101203
  Transmission Date: 20110411
  Serious: Yes (Life-Threatening, Hospitalization, Disabling)
  Sender: FDA-Public Use
  Company Number: 2010-01135

PATIENT
  Age: 69 Year
  Sex: Female

DRUGS (16)
  1. SIMVASTATIN [Suspect]
     Indication: PRODUCT USED FOR UNKNOWN INDICATION
     Dosage: 40 MG (40 MG,), ORAL
     Route: 048
     Dates: start: 20061201, end: 20101022
  2. AMIODARONE HYDROCHLORIDE [Suspect]
     Indication: PRODUCT USED FOR UNKNOWN INDICATION
     Dosage: 200 MG (200 MG,), ORAL
     Route: 048
     Dates: start: 20091001, end: 20101022
  3. ASPIRIN [Concomitant]
  4. BALSALAZIDE (UNKNOWN) [Concomitant]
  5. BUMETANIDE (UNKNOWN) [Concomitant]
  6. CITALOPRAM (UNKNOWN) [Concomitant]
  7. CODEIN PHOSPHATE (UNKNOWN) [Concomitant]
  8. FLUCLOXACILLIN (UNKNOWN) [Concomitant]
  9. FRUSEMIDE (UNKNOWN) [Concomitant]
  10. NEBIVOLOL (UNKNOWN) [Concomitant]
  11. PARACETAMOL (UNKNOWN) [Concomitant]
  12. PERINDOPRIL (UNKNOWN) [Concomitant]
  13. SIMVASTATIN [Concomitant]
  14. SPIRONOLACTONE (UNKNOWN) [Concomitant]
  15. TRIMETHOPRIM [Concomitant]
  16. WARFARIN SODIUM [Concomitant]

REACTIONS (7)
  - ANXIETY [None]
  - ASTHENIA [None]
  - INTERNATIONAL NORMALISED RATIO INCREASED [None]
  - MOBILITY DECREASED [None]
  - PAIN [None]
  - PAIN IN EXTREMITY [None]
  - RHABDOMYOLYSIS [None]
